FAERS Safety Report 24366431 (Version 2)
Quarter: 2024Q4

REPORT INFORMATION
  Report Type: Report from Study
  Country: CA (occurrence: CA)
  Receive Date: 20240926
  Receipt Date: 20241002
  Transmission Date: 20250114
  Serious: Yes (Other)
  Sender: REGENERON
  Company Number: CA-BAYER-2024A135830

PATIENT
  Sex: Male

DRUGS (1)
  1. EYLEA [Suspect]
     Active Substance: AFLIBERCEPT
     Indication: Diabetic retinal oedema
     Dosage: IN BOTH EYES, SOLUTION FOR INJECTION, 40MG/ML
     Dates: start: 20231004

REACTIONS (3)
  - Cataract operation [Unknown]
  - Cataract operation [Unknown]
  - Eye laser surgery [Recovered/Resolved]

NARRATIVE: CASE EVENT DATE: 20240322
